FAERS Safety Report 9507908 (Version 1)
Quarter: 2013Q1

REPORT INFORMATION
  Report Type: Spontaneous
  Country: US (occurrence: None)
  Receive Date: 20130305
  Receipt Date: 20130305
  Transmission Date: 20140127
  Serious: Yes (Other)
  Sender: FDA-Public Use
  Company Number: 163-21880-12021698

PATIENT
  Age: 85 Year
  Sex: Female

DRUGS (9)
  1. REVLIMID [Suspect]
     Indication: MYELODYSPLASTIC SYNDROME
     Dosage: 21/28 DAYS
     Route: 048
     Dates: start: 20110607, end: 20110715
  2. EPOETIN ALFA [Concomitant]
  3. FILGRASTIM (FILGRASTIM) [Concomitant]
  4. NYSTATIN (NYSTATIN) [Concomitant]
  5. GABAPENTIN (GABAPENTIN) [Concomitant]
  6. VICODIN (VICODIN) [Concomitant]
  7. ISOSORBIDE MONONITRATE (ISOSORBIDE MONONITRATE) [Concomitant]
  8. DEFERASIROX (DEFERASIROX) [Concomitant]
  9. ONDANSETRON (ONDANSETRON) [Concomitant]

REACTIONS (1)
  - Platelet count decreased [None]
